FAERS Safety Report 8140014-1 (Version None)
Quarter: 2012Q1

REPORT INFORMATION
  Report Type: 
  Country: None (occurrence: None)
  Receive Date: 20120215
  Receipt Date: 20120206
  Transmission Date: 20120608
  Serious: Yes (Other)
  Sender: FDA-Public Use
  Company Number: US-ASTRAZENECA-2012SE07864

PATIENT
  Sex: Male

DRUGS (3)
  1. LIPITOR [Suspect]
     Route: 065
  2. CRESTOR [Suspect]
     Route: 048
  3. CRESTOR [Suspect]
     Route: 048

REACTIONS (6)
  - HYPOAESTHESIA ORAL [None]
  - MUSCULAR WEAKNESS [None]
  - VIITH NERVE PARALYSIS [None]
  - PARAESTHESIA [None]
  - AMNESIA [None]
  - DIZZINESS [None]
